FAERS Safety Report 6521592-2 (Version None)
Quarter: 2009Q4

REPORT INFORMATION
  Report Type: 
  Country: None (occurrence: None)
  Receive Date: 20091230
  Receipt Date: 20091221
  Transmission Date: 20100525
  Serious: Yes (Hospitalization)
  Sender: FDA-Public Use
  Company Number: US-ASTRAZENECA-2009SE32964

PATIENT
  Age: 53 Year
  Sex: Female
  Weight: 106.1 kg

DRUGS (1)
  1. SEROQUEL [Suspect]
     Indication: DELUSION
     Route: 048
     Dates: start: 20080801, end: 20081218

REACTIONS (5)
  - BREAST SWELLING [None]
  - DRY THROAT [None]
  - FOAMING AT MOUTH [None]
  - TREMOR [None]
  - WEIGHT INCREASED [None]
